FAERS Safety Report 5376306-9 (Version None)
Quarter: 2007Q2

REPORT INFORMATION
  Report Type: 
  Country: None (occurrence: None)
  Receive Date: 20070628
  Receipt Date: 20061222
  Transmission Date: 20071010
  Serious: Yes (Death)
  Sender: FDA-Public Use
  Company Number: 06H-163-0311602-00

PATIENT
  Age: 9 Month
  Sex: Female

DRUGS (2)
  1. POTASSIUM CHLORIDE 0.15% IN DEXTROSE 5% AND SODIUM CHLORIDE 0.2% [Suspect]
     Indication: DRUG USE FOR UNKNOWN INDICATION
     Dosage: 60 ML, 1 IN 1 HR, INTRAVENOUS
     Route: 042
     Dates: start: 20061218, end: 20061219
  2. SODIUM CHLORIDE 0.9% [Concomitant]

REACTIONS (1)
  - BLOOD POTASSIUM INCREASED [None]
